FAERS Safety Report 17001511 (Version 2)
Quarter: 2020Q1

REPORT INFORMATION
  Report Type: Report from Study
  Country: RU (occurrence: RU)
  Receive Date: 20191106
  Receipt Date: 20200110
  Transmission Date: 20200409
  Serious: Yes (Death, Other)
  Sender: FDA-Public Use
  Company Number: RU-CELGENEUS-RUS-20191100997

PATIENT
  Age: 73 Year
  Sex: Female
  Weight: 70.1 kg

DRUGS (10)
  1. PF-04449913 [Suspect]
     Active Substance: GLASDEGIB
     Indication: ACUTE MYELOID LEUKAEMIA
     Route: 048
     Dates: start: 20190704, end: 20190706
  2. CEFTRIAXONE. [Concomitant]
     Active Substance: CEFTRIAXONE
     Indication: PROPHYLAXIS
  3. METOCLOPRAMIDE. [Concomitant]
     Active Substance: METOCLOPRAMIDE
     Indication: ANTIEMETIC SUPPORTIVE CARE
     Route: 065
     Dates: start: 20190707, end: 20190708
  4. CEFTRIAXONE. [Concomitant]
     Active Substance: CEFTRIAXONE
     Indication: PROPHYLAXIS
     Route: 065
     Dates: start: 20190620
  5. LISINOPRIL. [Concomitant]
     Active Substance: LISINOPRIL
     Indication: ARTERIAL DISORDER
     Route: 065
     Dates: start: 2017, end: 20190708
  6. ETAMSYLATE [Concomitant]
     Active Substance: ETHAMSYLATE
     Indication: HAEMORRHAGIC DISORDER
     Route: 065
     Dates: start: 20190620
  7. TRANEXAMIC ACID. [Concomitant]
     Active Substance: TRANEXAMIC ACID
     Indication: HAEMORRHAGIC DISORDER
     Route: 065
     Dates: start: 20190704
  8. FURAZIDIN [Concomitant]
     Active Substance: FURAZIDINE
     Indication: HAEMATURIA
     Route: 065
     Dates: start: 20190703, end: 20190707
  9. AZACITIDINE. [Suspect]
     Active Substance: AZACITIDINE
     Indication: ACUTE MYELOID LEUKAEMIA
     Dosage: 75 MILLIGRAM/SQ. METER
     Route: 058
     Dates: start: 20190704, end: 20190706
  10. BISOPROLOLUM [Concomitant]
     Active Substance: BISOPROLOL FUMARATE
     Indication: ARTERIAL DISORDER
     Route: 065
     Dates: start: 2017, end: 20190708

REACTIONS (2)
  - Acute myeloid leukaemia [Fatal]
  - Encephalopathy [Not Recovered/Not Resolved]

NARRATIVE: CASE EVENT DATE: 20190706
